FAERS Safety Report 23982815 (Version 1)
Quarter: 2024Q2

REPORT INFORMATION
  Report Type: Spontaneous
  Country: US (occurrence: US)
  Receive Date: 20240617
  Receipt Date: 20240617
  Transmission Date: 20240715
  Serious: No
  Sender: FDA-Public Use
  Company Number: US-MYLANLABS-2024M1053739

PATIENT

DRUGS (1)
  1. ESTRADIOL TRANSDERMAL SYSTEM [Suspect]
     Active Substance: ESTRADIOL
     Indication: Product used for unknown indication
     Dosage: 0.0375 MILLIGRAM, QD (PER DAY)
     Route: 062

REACTIONS (10)
  - Anger [Recovering/Resolving]
  - Sleep disorder [Recovering/Resolving]
  - Blood oestrogen increased [Recovering/Resolving]
  - Malaise [Recovering/Resolving]
  - Pain [Recovering/Resolving]
  - Intermenstrual bleeding [Recovering/Resolving]
  - Breast tenderness [Recovering/Resolving]
  - Headache [Recovering/Resolving]
  - Therapeutic response changed [Unknown]
  - Product substitution issue [Unknown]
